FAERS Safety Report 8583760-8 (Version None)
Quarter: 2012Q3

REPORT INFORMATION
  Report Type: 
  Country: None (occurrence: None)
  Receive Date: 20120810
  Receipt Date: 20120725
  Transmission Date: 20120928
  Serious: Yes (Congenital Anomaly)
  Sender: FDA-Public Use
  Company Number: US-009507513-1208USA001148

PATIENT

DRUGS (2)
  1. RIBAVIRIN (+) INTERFERON ALFA-2B [Suspect]
     Route: 064
  2. PEG-INTRON [Suspect]
     Dosage: UNK
     Route: 064

REACTIONS (2)
  - TRISOMY 21 [None]
  - FOETAL EXPOSURE DURING PREGNANCY [None]
